FAERS Safety Report 7422887-0 (Version None)
Quarter: 2011Q2

REPORT INFORMATION
  Report Type: 
  Country: None (occurrence: None)
  Receive Date: 20110414
  Receipt Date: 20110414
  Transmission Date: 20111010
  Serious: No
  Sender: FDA-Public Use
  Company Number: None

PATIENT
  Age: 29 Year
  Sex: Female
  Weight: 57.1532 kg

DRUGS (1)
  1. OLEPTRO [Suspect]
     Indication: ANXIETY
     Dosage: 150MG FOR 3DAY@BEDTIME 200 MG EVERYDAY @ BED TIM
     Dates: start: 20110412, end: 20110413

REACTIONS (5)
  - DIZZINESS [None]
  - FATIGUE [None]
  - GAIT DISTURBANCE [None]
  - IMPAIRED WORK ABILITY [None]
  - ASTHENOPIA [None]
